FAERS Safety Report 5480790-X (Version None)
Quarter: 2007Q4

REPORT INFORMATION
  Report Type: 
  Country: None (occurrence: None)
  Receive Date: 20071009
  Receipt Date: 20070312
  Transmission Date: 20080405
  Serious: Yes (Hospitalization)
  Sender: FDA-Public Use
  Company Number: FR-PFIZER INC-2007019908

PATIENT
  Sex: Male
  Weight: 19.7 kg

DRUGS (11)
  1. GENOTONORM [Suspect]
     Indication: BODY HEIGHT BELOW NORMAL
     Route: 058
     Dates: start: 20051114, end: 20060206
  2. GENOTONORM [Suspect]
     Route: 058
     Dates: start: 20060207, end: 20061113
  3. GENOTONORM [Suspect]
     Route: 058
     Dates: start: 20061114, end: 20061220
  4. GENOTONORM [Suspect]
     Route: 058
  5. CORTANCYL [Concomitant]
     Route: 048
  6. ETANERCEPT [Concomitant]
     Route: 058
  7. OMEPRAZOLE [Concomitant]
     Route: 048
  8. APRANAX [Concomitant]
     Route: 048
  9. METHOTREXATE [Concomitant]
     Route: 048
  10. CALCIDOSE [Concomitant]
     Route: 048
  11. ERGOCALCIFEROL [Concomitant]
     Route: 048

REACTIONS (2)
  - ARTHRALGIA [None]
  - GAIT DISTURBANCE [None]
